FAERS Safety Report 25847806 (Version 1)
Quarter: 2025Q3

REPORT INFORMATION
  Report Type: Report from Study
  Country: US (occurrence: US)
  Receive Date: 20250925
  Receipt Date: 20250925
  Transmission Date: 20251020
  Serious: Yes (Other)
  Sender: TAKEDA
  Company Number: US-TAKEDA-2025TUS082356

PATIENT
  Age: 18 Year
  Sex: Male

DRUGS (26)
  1. MARIBAVIR [Suspect]
     Active Substance: MARIBAVIR
     Indication: Cytomegalovirus infection
     Dosage: 400 MILLIGRAM, BID
     Dates: start: 20250904
  2. TYLENOL [Concomitant]
     Active Substance: ACETAMINOPHEN
     Dosage: 650 MILLIGRAM, Q4HR
     Dates: start: 20250916
  3. ALBUTEROL SULFATE [Concomitant]
     Active Substance: ALBUTEROL SULFATE
     Dosage: 2.5 MILLIGRAM, Q2HR
  4. ACTIVASE [Concomitant]
     Active Substance: ALTEPLASE
  5. VITAMIN D3 [Concomitant]
     Active Substance: CHOLECALCIFEROL
     Dosage: 4000 INTERNATIONAL UNIT, QD
     Dates: start: 20250916
  6. CYTOGAM [Concomitant]
     Active Substance: HUMAN CYTOMEGALOVIRUS IMMUNE GLOBULIN
     Dosage: 150 MILLIGRAM/KILOGRAM, 1/WEEK
     Dates: end: 20250911
  7. BENADRYL [Concomitant]
     Active Substance: DIPHENHYDRAMINE HYDROCHLORIDE
     Dosage: 50 MILLIGRAM, Q6HR
     Dates: start: 20250911
  8. BENADRYL [Concomitant]
     Active Substance: DIPHENHYDRAMINE HYDROCHLORIDE
     Dosage: 50 MILLIGRAM, Q6HR
     Dates: start: 20250916
  9. Plasmalyte A [Concomitant]
  10. EPINEPHRINE [Concomitant]
     Active Substance: EPINEPHRINE
  11. CYTOVENE IV [Concomitant]
     Active Substance: GANCICLOVIR SODIUM
     Dosage: 5 MILLIGRAM/KILOGRAM, Q12H
     Dates: end: 20250916
  12. HEPARIN [Concomitant]
     Active Substance: HEPARIN SODIUM
  13. HYDROCORTISONE [Concomitant]
     Active Substance: HYDROCORTISONE
     Dosage: UNK UNK, BID
     Route: 061
  14. SOLU-CORTEF [Concomitant]
     Active Substance: HYDROCORTISONE SODIUM SUCCINATE
  15. ATARAX [Concomitant]
     Active Substance: HYDROXYZINE HYDROCHLORIDE
     Dosage: 50 MILLIGRAM, Q6HR
     Dates: start: 20250914
  16. Lmx [Concomitant]
     Route: 061
  17. SMOFLIPID [Concomitant]
     Active Substance: FISH OIL\MEDIUM-CHAIN TRIGLYCERIDES\OLIVE OIL\SOYBEAN OIL
  18. MEROPENEM [Concomitant]
     Active Substance: MEROPENEM
     Dosage: 20 MILLIGRAM/ KILOGRAM
     Dates: start: 20250912
  19. MEROPENEM [Concomitant]
     Active Substance: MEROPENEM
  20. ZOFRAN [Concomitant]
     Active Substance: ONDANSETRON HYDROCHLORIDE
     Dosage: 8 MILLIGRAM, Q8HR
     Dates: start: 20250916
  21. PROTONIX [Concomitant]
     Active Substance: PANTOPRAZOLE SODIUM
     Dosage: 20 MILLIGRAM, QD
     Dates: start: 20250916
  22. PYRIDIUM [Concomitant]
     Active Substance: PHENAZOPYRIDINE
     Dosage: 200 MILLIGRAM, TID
  23. COMPAZINE [Concomitant]
     Active Substance: PROCHLORPERAZINE MALEATE
     Dosage: 10 MILLIGRAM, Q6HR
     Dates: start: 20250916
  24. GRANIX [Concomitant]
     Active Substance: TBO-FILGRASTIM
     Dosage: 5 MICROGRAM/ KILOGRAM, QD
  25. KENALOG [Concomitant]
     Active Substance: TRIAMCINOLONE ACETONIDE
     Dosage: UNK UNK, BID
     Route: 061
  26. VALCYTE [Concomitant]
     Active Substance: VALGANCICLOVIR HYDROCHLORIDE

REACTIONS (3)
  - Cytomegalovirus infection reactivation [Unknown]
  - Sleep disorder [Unknown]
  - Weight gain poor [Unknown]

NARRATIVE: CASE EVENT DATE: 20250916
